FAERS Safety Report 4592360-6 (Version None)
Quarter: 2005Q1

REPORT INFORMATION
  Report Type: 
  Country: None (occurrence: None)
  Receive Date: 20050228
  Receipt Date: 20041220
  Transmission Date: 20050727
  Serious: Yes (Hospitalization)
  Sender: FDA-Public Use
  Company Number: US-BRISTOL-MYERS SQUIBB COMPANY-12801791

PATIENT
  Age: 48 Year
  Sex: Male
  Weight: 107 kg

DRUGS (7)
  1. ABILIFY [Suspect]
     Indication: BIPOLAR DISORDER
     Dates: start: 20041213, end: 20041219
  2. SIMVASTATIN [Suspect]
     Route: 048
     Dates: end: 20041219
  3. FELODIPINE [Concomitant]
     Route: 048
  4. LISINOPRIL [Concomitant]
     Route: 048
  5. TERAZOSIN [Concomitant]
     Route: 048
  6. HALOPERIDOL [Concomitant]
  7. LORAZEPAM [Concomitant]

REACTIONS (1)
  - RHABDOMYOLYSIS [None]
